FAERS Safety Report 9279471 (Version 1)
Quarter: 2013Q2

REPORT INFORMATION
  Report Type: Spontaneous
  Country: US (occurrence: US)
  Receive Date: 20130508
  Receipt Date: 20130508
  Transmission Date: 20140414
  Serious: Yes (Other)
  Sender: FDA-Public Use
  Company Number: US-B.I. PHARMACEUTICALS,INC./RIDGEFIELD-2013-BI-12173PF

PATIENT
  Sex: Female

DRUGS (3)
  1. SPIRIVA [Suspect]
  2. TIKOSYN [Suspect]
  3. LIPITOR [Suspect]

REACTIONS (1)
  - Cardiac disorder [Unknown]
